FAERS Safety Report 25994242 (Version 2)
Quarter: 2025Q4

REPORT INFORMATION
  Report Type: Spontaneous
  Country: JP (occurrence: JP)
  Receive Date: 20251104
  Receipt Date: 20251118
  Transmission Date: 20260118
  Serious: Yes (Hospitalization, Other)
  Sender: SANOFI AVENTIS
  Company Number: JP-SA-2025SA320033

PATIENT
  Age: 85 Year
  Sex: Female

DRUGS (1)
  1. CLOPIDOGREL BISULFATE [Suspect]
     Active Substance: CLOPIDOGREL BISULFATE
     Indication: Product used for unknown indication
     Route: 065

REACTIONS (5)
  - Acquired haemophilia [Recovering/Resolving]
  - Eating disorder [Recovering/Resolving]
  - Movement disorder [Recovering/Resolving]
  - Haemorrhage subcutaneous [Recovering/Resolving]
  - Factor VIII inhibition [Recovering/Resolving]
